FAERS Safety Report 13371180 (Version 1)
Quarter: 2017Q1

REPORT INFORMATION
  Report Type: Report from Study
  Country: US (occurrence: US)
  Receive Date: 20170324
  Receipt Date: 20170324
  Transmission Date: 20170429
  Serious: Yes (Life-Threatening, Hospitalization, Disabling, Other)
  Sender: FDA-Public Use
  Company Number: US-PFIZER INC-2003156477US

PATIENT
  Age: 13 Year
  Sex: Male
  Weight: 56 kg

DRUGS (2)
  1. GENOTROPIN [Suspect]
     Active Substance: SOMATROPIN
     Indication: HYPOPITUITARISM
     Dosage: 9.6 MG, WEEKLY (7 INJ/WK)
     Route: 058
     Dates: start: 19991011, end: 20030207
  2. LUPRON [Concomitant]
     Active Substance: LEUPROLIDE ACETATE
     Dosage: 15 MG, EVERY 28 DAYS
     Route: 030
     Dates: start: 20010418, end: 20030207

REACTIONS (1)
  - Testicular germ cell cancer [Unknown]

NARRATIVE: CASE EVENT DATE: 20030207
